FAERS Safety Report 8791135 (Version 1)
Quarter: 2012Q4

REPORT INFORMATION
  Report Type: Spontaneous
  Country: US (occurrence: None)
  Receive Date: 20120913
  Receipt Date: 20120913
  Transmission Date: 20130627
  Serious: Yes (Other)
  Sender: FDA-Public Use
  Company Number: None

PATIENT
  Age: 86 Year
  Sex: Female
  Weight: 73.48 kg

DRUGS (3)
  1. ZOCOR [Suspect]
     Indication: HIGH CHOLESTEROL
     Dosage: 1/day
  2. DIOVAN [Suspect]
     Dosage: 1/day
  3. LOVAZA [Concomitant]

REACTIONS (3)
  - Pruritus [None]
  - Pain in extremity [None]
  - Middle insomnia [None]
